FAERS Safety Report 5532473-5 (Version None)
Quarter: 2007Q4

REPORT INFORMATION
  Report Type: 
  Country: None (occurrence: None)
  Receive Date: 20071203
  Receipt Date: 20071121
  Transmission Date: 20080405
  Serious: Yes (Hospitalization)
  Sender: FDA-Public Use
  Company Number: JP-PFIZER INC-2007096739

PATIENT
  Sex: Female
  Weight: 36.8 kg

DRUGS (4)
  1. ZITHROMAX [Suspect]
     Indication: NASOPHARYNGITIS
     Route: 048
     Dates: start: 20071018, end: 20071020
  2. NORVASC [Concomitant]
     Route: 048
  3. ASPIRIN [Concomitant]
     Route: 048
  4. HOKUNALIN [Concomitant]
     Route: 062

REACTIONS (1)
  - LUNG DISORDER [None]
